FAERS Safety Report 19058267 (Version 1)
Quarter: 2021Q1

REPORT INFORMATION
  Report Type: Other
  Country: DE (occurrence: DE)
  Receive Date: 20210324
  Receipt Date: 20210324
  Transmission Date: 20210420
  Serious: Yes (Hospitalization)
  Sender: FDA-Public Use
  Company Number: DE-VALIDUS PHARMACEUTICALS LLC-DE-2021VAL000776

PATIENT

DRUGS (2)
  1. PETHIDINE HYDROCHLORIDE [Suspect]
     Active Substance: MEPERIDINE HYDROCHLORIDE
     Indication: PRODUCT USED FOR UNKNOWN INDICATION
     Dosage: 100 MG, 1X
     Route: 042
     Dates: start: 20201217, end: 20201217
  2. CROMOGLICIN [Concomitant]
     Indication: PRODUCT USED FOR UNKNOWN INDICATION
     Dosage: UNK

REACTIONS (3)
  - Tremor [Unknown]
  - Visual impairment [Unknown]
  - Dizziness [Unknown]
